FAERS Safety Report 22098265 (Version 3)
Quarter: 2023Q2

REPORT INFORMATION
  Report Type: Report from Study
  Country: AT (occurrence: AT)
  Receive Date: 20230315
  Receipt Date: 20230630
  Transmission Date: 20230721
  Serious: Yes (Other)
  Sender: FDA-Public Use
  Company Number: AT-002147023-NVSC2019AT013512

PATIENT
  Sex: Female
  Weight: 59 kg

DRUGS (4)
  1. KISQALI [Suspect]
     Active Substance: RIBOCICLIB
     Indication: Breast cancer
     Dosage: 600 MG, QD
     Route: 065
     Dates: start: 20190208
  2. KISQALI [Suspect]
     Active Substance: RIBOCICLIB
     Dosage: UNK
     Route: 065
     Dates: start: 20211207, end: 20220121
  3. EXEMESTANE [Concomitant]
     Active Substance: EXEMESTANE
     Indication: Product used for unknown indication
     Dosage: 25 MG, QD
     Route: 065
     Dates: start: 20190208, end: 2019
  4. BETAMETHASONE DIPROPIONATE\GENTAMICIN SULFATE [Concomitant]
     Active Substance: BETAMETHASONE DIPROPIONATE\GENTAMICIN SULFATE
     Indication: Prophylaxis
     Dosage: 1 UNK
     Route: 065
     Dates: start: 20211124, end: 20211125

REACTIONS (17)
  - Renal failure [Recovering/Resolving]
  - Leukopenia [Recovering/Resolving]
  - Night sweats [Not Recovered/Not Resolved]
  - Onychoclasis [Not Recovered/Not Resolved]
  - Muscle spasms [Not Recovered/Not Resolved]
  - Tendon calcification [Unknown]
  - Back pain [Recovering/Resolving]
  - Vertigo [Recovered/Resolved]
  - Arthralgia [Recovered/Resolved]
  - Osteopenia [Not Recovered/Not Resolved]
  - Lymphoedema [Not Recovered/Not Resolved]
  - Implant site pain [Recovering/Resolving]
  - Axillary pain [Recovering/Resolving]
  - Pain in extremity [Recovering/Resolving]
  - Herpes zoster [Recovered/Resolved]
  - Sinusitis [Not Recovered/Not Resolved]
  - Toothache [Not Recovered/Not Resolved]

NARRATIVE: CASE EVENT DATE: 20190101
